FAERS Safety Report 25906002 (Version 1)
Quarter: 2025Q4

REPORT INFORMATION
  Report Type: Spontaneous
  Country: JP (occurrence: None)
  Receive Date: 20251010
  Receipt Date: 20251010
  Transmission Date: 20260118
  Serious: Yes (Death)
  Sender: ORGANON
  Company Number: JP-ORGANON-O2510JPN000645

PATIENT
  Age: 27 Year
  Sex: Female
  Weight: 69.3 kg

DRUGS (20)
  1. DESLORATADINE [Suspect]
     Active Substance: DESLORATADINE
     Dosage: UNK
  2. MIRTAZAPINE [Suspect]
     Active Substance: MIRTAZAPINE
     Dosage: UNK
  3. ATOMOXETINE [Suspect]
     Active Substance: ATOMOXETINE
     Dosage: UNK
  4. ALPRAZOLAM [Suspect]
     Active Substance: ALPRAZOLAM
     Dosage: UNK
  5. ESCITALOPRAM [Suspect]
     Active Substance: ESCITALOPRAM OXALATE
     Dosage: UNK
  6. ESZOPICLONE [Suspect]
     Active Substance: ESZOPICLONE
     Dosage: UNK
  7. QUETIAPINE [Suspect]
     Active Substance: QUETIAPINE
     Dosage: UNK
  8. GUANFACINE [Suspect]
     Active Substance: GUANFACINE
     Dosage: UNK
  9. DICLOFENAC [Suspect]
     Active Substance: DICLOFENAC
     Dosage: UNK
  10. BIPERIDEN [Suspect]
     Active Substance: BIPERIDEN
     Dosage: UNK
  11. PREGABALIN [Suspect]
     Active Substance: PREGABALIN
     Dosage: UNK
  12. RISPERIDONE [Suspect]
     Active Substance: RISPERIDONE
     Dosage: UNK
  13. REBAMIPIDE [Suspect]
     Active Substance: REBAMIPIDE
     Dosage: UNK
  14. LORAZEPAM [Suspect]
     Active Substance: LORAZEPAM
     Dosage: UNK
  15. FOSFOMYCIN [Suspect]
     Active Substance: FOSFOMYCIN
     Dosage: UNK
  16. RAMELTEON [Suspect]
     Active Substance: RAMELTEON
     Dosage: UNK
  17. ACETAMINOPHEN [Suspect]
     Active Substance: ACETAMINOPHEN
     Dosage: UNK
  18. DEXTROMETHORPHAN [Suspect]
     Active Substance: DEXTROMETHORPHAN
     Dosage: UNK
  19. BISACODYL [Suspect]
     Active Substance: BISACODYL
     Dosage: UNK
  20. FEXOFENADINE HYDROCHLORIDE [Suspect]
     Active Substance: FEXOFENADINE HYDROCHLORIDE
     Dosage: UNK

REACTIONS (1)
  - Intentional overdose [Fatal]
